FAERS Safety Report 7090247-0 (Version None)
Quarter: 2010Q4

REPORT INFORMATION
  Report Type: 
  Country: None (occurrence: None)
  Receive Date: 20101103
  Receipt Date: 20101103
  Transmission Date: 20110411
  Serious: Yes (Life-Threatening, Hospitalization)
  Sender: FDA-Public Use
  Company Number: None

PATIENT
  Age: 80 Year
  Sex: Male
  Weight: 82 kg

DRUGS (2)
  1. ENOXAPARIN SODIUM [Suspect]
     Dosage: 30 MG EVERY DAY SQ
     Route: 058
     Dates: start: 20101006, end: 20101009
  2. ASPIRIN [Suspect]
     Dosage: 1 TAB EVERY DAY PO
     Route: 048
     Dates: start: 20101006, end: 20101009

REACTIONS (5)
  - ANAEMIA [None]
  - CONFUSIONAL STATE [None]
  - GASTRIC HAEMORRHAGE [None]
  - HAEMORRHAGE [None]
  - RENAL FAILURE ACUTE [None]
